FAERS Safety Report 20065023 (Version 8)
Quarter: 2022Q1

REPORT INFORMATION
  Report Type: Report from Study
  Country: CN (occurrence: None)
  Receive Date: 20211113
  Receipt Date: 20220315
  Transmission Date: 20220423
  Serious: Yes (Hospitalization)
  Sender: FDA-Public Use
  Company Number: CN-ROCHE-2949827

PATIENT
  Age: 75 Year
  Sex: Female
  Weight: 37.5 kg

DRUGS (18)
  1. PLACEBO [Suspect]
     Active Substance: UNSPECIFIED INGREDIENT
     Indication: Small cell lung cancer extensive stage
     Dosage: DOSE LAST STUDY DRUG ADMIN PRIOR TO FIRST EPISODE OF AE AND SAE:12/OCT/2021?DOSE LAST STUDY DRUG ADM
     Route: 042
     Dates: start: 20210811
  2. ATEZOLIZUMAB [Suspect]
     Active Substance: ATEZOLIZUMAB
     Indication: Small cell lung cancer extensive stage
     Dosage: ON 12/OCT/2021, DOSE LAST STUDY DRUG ADMIN PRIOR TO FIRST EPISODE OF HYPONATREMIA OF AE AND SAE WAS
     Route: 041
     Dates: start: 20210811
  3. CARBOPLATIN [Suspect]
     Active Substance: CARBOPLATIN
     Indication: Small cell lung cancer extensive stage
     Dosage: AREA UNDER THE CONCENTRATION TIME CURVE (AUC) OF 5 MG/ML/MIN?ON 12/OCT/2021, LAST DOSE OF 372 MG WAS
     Route: 042
     Dates: start: 20210811
  4. ETOPOSIDE [Suspect]
     Active Substance: ETOPOSIDE
     Indication: Small cell lung cancer extensive stage
     Dosage: ON 12/OCT/2021, 127 MG WAS LAST DOSE ADMINISTERED PRIOR TO AE.?ON 02/NOV/2021, MOST RECENT DOSE OF 1
     Route: 042
     Dates: start: 20210811
  5. ESOMEPRAZOLE SODIUM [Concomitant]
     Active Substance: ESOMEPRAZOLE SODIUM
     Dates: start: 20211102, end: 20211104
  6. PANTOPRAZOLE SODIUM [Concomitant]
     Active Substance: PANTOPRAZOLE SODIUM
     Dates: start: 20211011, end: 20211014
  7. PANTOPRAZOLE SODIUM [Concomitant]
     Active Substance: PANTOPRAZOLE SODIUM
     Dates: start: 20211102, end: 20211102
  8. RAMOSETRON HYDROCHLORIDE [Concomitant]
     Active Substance: RAMOSETRON HYDROCHLORIDE
     Indication: Nausea
     Dates: start: 20211011, end: 20211014
  9. RAMOSETRON HYDROCHLORIDE [Concomitant]
     Active Substance: RAMOSETRON HYDROCHLORIDE
     Dates: start: 20211101, end: 20211104
  10. FUROSEMIDE [Concomitant]
     Active Substance: FUROSEMIDE
     Indication: Polyuria
     Dates: start: 20211012, end: 20211014
  11. FUROSEMIDE [Concomitant]
     Active Substance: FUROSEMIDE
     Dates: start: 20211101, end: 20211104
  12. LIDOCAINE HYDROCHLORIDE [Concomitant]
     Active Substance: LIDOCAINE HYDROCHLORIDE
     Indication: Anaesthesia
     Dates: start: 20211012, end: 20211012
  13. LIDOCAINE HYDROCHLORIDE [Concomitant]
     Active Substance: LIDOCAINE HYDROCHLORIDE
     Dates: start: 20211101, end: 20211101
  14. METOCLOPRAMIDE [Concomitant]
     Active Substance: METOCLOPRAMIDE
     Indication: Nausea
     Dates: start: 20211014, end: 20211014
  15. MECAPEGFILGRASTIM [Concomitant]
     Active Substance: MECAPEGFILGRASTIM
     Indication: Neutrophil count
     Route: 058
     Dates: start: 20211016, end: 20211016
  16. MECAPEGFILGRASTIM [Concomitant]
     Active Substance: MECAPEGFILGRASTIM
     Indication: White blood cell count
  17. LACTULOSE [Concomitant]
     Active Substance: LACTULOSE
     Dosage: SOLUTION
     Route: 048
     Dates: start: 20211013, end: 20211014
  18. PANTOPRAZOLE SODIUM [Concomitant]
     Active Substance: PANTOPRAZOLE SODIUM
     Dates: start: 20211101, end: 20211102

REACTIONS (2)
  - Hyponatraemia [Recovered/Resolved]
  - Hypokalaemia [Recovered/Resolved]

NARRATIVE: CASE EVENT DATE: 20211020
